FAERS Safety Report 6885343-4 (Version None)
Quarter: 2010Q3

REPORT INFORMATION
  Report Type: 
  Country: None (occurrence: None)
  Receive Date: 20100726
  Receipt Date: 20100713
  Transmission Date: 20110219
  Serious: Yes (Other)
  Sender: FDA-Public Use
  Company Number: CIO10009899

PATIENT
  Age: 75 Year
  Sex: Male

DRUGS (1)
  1. PEPTO-BISMOL, FLAVOR UNKNOWN (BISMUTH SUBSALICYLATE 262 MG, CALCIUM CA [Suspect]
     Indication: COLITIS
     Dosage: 2 TABLET, 4/DAY, ORAL
     Route: 048
     Dates: start: 20100601

REACTIONS (1)
  - RENAL FAILURE ACUTE [None]
